FAERS Safety Report 7406510-7 (Version None)
Quarter: 2011Q2

REPORT INFORMATION
  Report Type: 
  Country: None (occurrence: None)
  Receive Date: 20110406
  Receipt Date: 20110406
  Transmission Date: 20111010
  Serious: Yes (Other)
  Sender: FDA-Public Use
  Company Number: None

PATIENT
  Sex: Female

DRUGS (2)
  1. LIVALO [Suspect]
     Indication: BLOOD CHOLESTEROL
     Dosage: 2MG ONCE WEEKLY PO
     Route: 048
     Dates: start: 20110314, end: 20110404
  2. TYLENOL PRN [Concomitant]

REACTIONS (2)
  - ABDOMINAL PAIN UPPER [None]
  - MYALGIA [None]
